FAERS Safety Report 16191534 (Version 1)
Quarter: 2019Q2

REPORT INFORMATION
  Report Type: Spontaneous
  Country: CH (occurrence: CH)
  Receive Date: 20190412
  Receipt Date: 20190412
  Transmission Date: 20190711
  Serious: Yes (Hospitalization, Other)
  Sender: FDA-Public Use
  Company Number: CH-GLAXOSMITHKLINE-CH2019064307

PATIENT
  Age: 29 Year
  Sex: Male
  Weight: 88 kg

DRUGS (1)
  1. ZINAT [Suspect]
     Active Substance: CEFUROXIME AXETIL
     Indication: PNEUMONIA
     Dosage: 1 DF, BID
     Route: 048
     Dates: start: 20190228, end: 20190302

REACTIONS (1)
  - Pancreatitis acute [Recovering/Resolving]

NARRATIVE: CASE EVENT DATE: 20190302
